FAERS Safety Report 9277650 (Version 3)
Quarter: 2013Q4

REPORT INFORMATION
  Report Type: Report from Study
  Country: CA (occurrence: CA)
  Receive Date: 20130508
  Receipt Date: 20131204
  Transmission Date: 20140711
  Serious: Yes (Death, Other)
  Sender: FDA-Public Use
  Company Number: PHHY2013CA044043

PATIENT
  Age: 90 Year
  Sex: Male

DRUGS (3)
  1. GLIVEC [Suspect]
     Indication: CHRONIC MYELOID LEUKAEMIA
     Dosage: 200 MG, QD
     Route: 048
     Dates: start: 201304
  2. GLIVEC [Suspect]
     Dosage: 200 MG, QD
     Route: 048
  3. LIPITOR [Concomitant]
     Indication: HYPERCOAGULATION
     Dosage: UNK UKN, UNK

REACTIONS (6)
  - Death [Fatal]
  - Fall [Unknown]
  - Soft tissue injury [Unknown]
  - Myalgia [Unknown]
  - Arthralgia [Unknown]
  - Back disorder [Recovering/Resolving]
